FAERS Safety Report 18593878 (Version 1)
Quarter: 2020Q4

REPORT INFORMATION
  Report Type: Spontaneous
  Country: FR (occurrence: FR)
  Receive Date: 20201209
  Receipt Date: 20201209
  Transmission Date: 20210114
  Serious: Yes (Hospitalization)
  Sender: FDA-Public Use
  Company Number: FR-TEVA-2020-FR-1855611

PATIENT
  Age: 77 Year
  Sex: Male
  Weight: 82 kg

DRUGS (1)
  1. PANTOPRAZOLE [Suspect]
     Active Substance: PANTOPRAZOLE
     Indication: VARICES OESOPHAGEAL
     Dosage: UNIT DOSE : 20 MG
     Route: 048
     Dates: start: 20201026, end: 20201029

REACTIONS (3)
  - Thrombocytopenia [Recovered/Resolved]
  - Agranulocytosis [Recovered/Resolved]
  - Neutropenia [Recovering/Resolving]

NARRATIVE: CASE EVENT DATE: 20201102
